FAERS Safety Report 7611116-0 (Version None)
Quarter: 2011Q3

REPORT INFORMATION
  Report Type: 
  Country: None (occurrence: None)
  Receive Date: 20110715
  Receipt Date: 20110705
  Transmission Date: 20111222
  Serious: Yes (Hospitalization)
  Sender: FDA-Public Use
  Company Number: JP-PFIZER INC-2011155949

PATIENT
  Age: 68 Year
  Sex: Male

DRUGS (7)
  1. PREDNISOLONE [Suspect]
     Dosage: UNK
     Route: 048
     Dates: start: 20091001, end: 20091001
  2. CYCLOSPORINE [Suspect]
     Dosage: 25 MG, DAILY
     Route: 048
  3. WARFARIN SODIUM [Suspect]
     Dosage: 2.5 MG, DAILY
     Route: 048
  4. LANSOPRAZOLE [Suspect]
     Dosage: UNK
     Route: 048
     Dates: start: 20091001, end: 20091001
  5. CYCLOSPORINE [Suspect]
     Dosage: UNK
     Route: 048
     Dates: start: 20091001, end: 20091001
  6. LANSOPRAZOLE [Suspect]
     Dosage: 30 MG, DALIY
     Route: 048
     Dates: start: 20091001
  7. PREDNISOLONE [Suspect]
     Dosage: 5 MG, DAILY
     Route: 049
     Dates: start: 20091001

REACTIONS (3)
  - CLOSTRIDIUM TEST POSITIVE [None]
  - ENTERITIS INFECTIOUS [None]
  - COLITIS MICROSCOPIC [None]
